FAERS Safety Report 12581749 (Version 2)
Quarter: 2016Q4

REPORT INFORMATION
  Report Type: Report from Study
  Country: NL (occurrence: NL)
  Receive Date: 20160722
  Receipt Date: 20161006
  Transmission Date: 20170207
  Serious: Yes (Death, Hospitalization, Other)
  Sender: FDA-Public Use
  Company Number: NL-AMGEN-NLDSL2016092486

PATIENT
  Age: 73 Year
  Sex: Male
  Weight: 65.4 kg

DRUGS (3)
  1. ANASTROZOLE. [Concomitant]
     Active Substance: ANASTROZOLE
     Dosage: 1 MG, QD
     Dates: start: 201606
  2. CALCICHEW D3 [Concomitant]
     Active Substance: CALCIUM\CHOLECALCIFEROL
     Dosage: 5 MG, QD
     Dates: start: 201606
  3. XGEVA [Suspect]
     Active Substance: DENOSUMAB
     Indication: METASTASES TO BONE
     Dosage: 1.7 ML, (120 MG), Q4WK
     Route: 058
     Dates: start: 201606

REACTIONS (2)
  - General physical health deterioration [Unknown]
  - Epilepsy [Fatal]

NARRATIVE: CASE EVENT DATE: 201606
